FAERS Safety Report 24349581 (Version 2)
Quarter: 2024Q4

REPORT INFORMATION
  Report Type: Spontaneous
  Country: US (occurrence: US)
  Receive Date: 20240923
  Receipt Date: 20241028
  Transmission Date: 20250114
  Serious: Yes (Other)
  Sender: ABBVIE
  Company Number: US-ABBVIE-5929688

PATIENT
  Sex: Female

DRUGS (2)
  1. CARBOXYMETHYLCELLULOSE SODIUM\GLYCERIN [Suspect]
     Active Substance: CARBOXYMETHYLCELLULOSE SODIUM\GLYCERIN
     Indication: Dry eye
     Dosage: PF
     Route: 047
  2. REFRESH RELIEVA PF [Suspect]
     Active Substance: CARBOXYMETHYLCELLULOSE SODIUM\GLYCERIN
     Indication: Product used for unknown indication
     Route: 047
     Dates: start: 20240917

REACTIONS (2)
  - Cataract [Unknown]
  - Product colour issue [Unknown]
